FAERS Safety Report 4544333-7 (Version None)
Quarter: 2005Q1

REPORT INFORMATION
  Report Type: 
  Country: None (occurrence: None)
  Receive Date: 20050104
  Receipt Date: 20041110
  Transmission Date: 20050727
  Serious: Yes (Life-Threatening, Hospitalization, Disabling)
  Sender: FDA-Public Use
  Company Number: US-MERCK-0411USA01986

PATIENT
  Age: 63 Year
  Sex: Male

DRUGS (8)
  1. VIOXX [Suspect]
     Indication: ARTHRITIS
     Route: 048
     Dates: start: 20021001, end: 20041013
  2. VITAMINS (UNSPECIFIED) [Concomitant]
     Route: 065
  3. PROTONIX [Concomitant]
     Route: 048
  4. LIPITOR [Concomitant]
     Route: 048
  5. ZOLOFT [Concomitant]
     Route: 048
  6. LORAZEPAM [Concomitant]
     Route: 048
  7. ATENOLOL [Concomitant]
     Route: 048
  8. FIORINAL [Concomitant]
     Route: 065

REACTIONS (5)
  - CORONARY ARTERY DISEASE [None]
  - DYSPNOEA EXERTIONAL [None]
  - MYOCARDIAL ISCHAEMIA [None]
  - TOOTHACHE [None]
  - VENTRICULAR TACHYCARDIA [None]
